FAERS Safety Report 9358749 (Version 1)
Quarter: 2013Q2

REPORT INFORMATION
  Report Type: Spontaneous
  Country: SE (occurrence: SE)
  Receive Date: 20130620
  Receipt Date: 20130620
  Transmission Date: 20140414
  Serious: Yes (Other)
  Sender: FDA-Public Use
  Company Number: SE-009507513-1306SWE008788

PATIENT
  Sex: Female

DRUGS (1)
  1. ALENDRONATE SODIUM [Suspect]
     Indication: OSTEOPOROSIS
     Dosage: 700 MG DAY
     Route: 048
     Dates: start: 2010

REACTIONS (2)
  - Pain [Not Recovered/Not Resolved]
  - Pathological fracture [Not Recovered/Not Resolved]
